FAERS Safety Report 8353654-1 (Version None)
Quarter: 2012Q2

REPORT INFORMATION
  Report Type: 
  Country: None (occurrence: None)
  Receive Date: 20120509
  Receipt Date: 20120425
  Transmission Date: 20120825
  Serious: Yes (Hospitalization, Other)
  Sender: FDA-Public Use
  Company Number: 2011AP001813

PATIENT
  Age: 42 Year
  Sex: Female

DRUGS (3)
  1. WARFARIN SODIUM [Suspect]
     Dosage: 2.5 MG
  2. LAMOTRIGINE [Suspect]
     Indication: BIPOLAR DISORDER
     Dosage: 150 MG;QD
  3. DIVALPROEX SODIUM [Suspect]
     Indication: BIPOLAR DISORDER
     Dosage: 1000 MG;QD; 250 MG;BID

REACTIONS (8)
  - EPISTAXIS [None]
  - CARDIAC FAILURE CONGESTIVE [None]
  - DRUG INTERACTION [None]
  - INTERNATIONAL NORMALISED RATIO INCREASED [None]
  - LEFT ATRIAL DILATATION [None]
  - ADHESION [None]
  - MITRAL VALVE INCOMPETENCE [None]
  - CORONARY ARTERY DISEASE [None]
